FAERS Safety Report 9520118 (Version 1)
Quarter: 2013Q1

REPORT INFORMATION
  Report Type: Spontaneous
  Country: US (occurrence: None)
  Receive Date: 20130305
  Receipt Date: 20130305
  Transmission Date: 20140127
  Serious: No
  Sender: FDA-Public Use
  Company Number: 163-21880-12072236

PATIENT
  Age: 71 Year
  Sex: Female
  Weight: 74.5 kg

DRUGS (6)
  1. REVLIMID (LENALIDOMIDE) (CAPSULES) [Suspect]
     Indication: PLASMA CELL MYELOMA
     Route: 048
     Dates: start: 20120305, end: 2012
  2. COMPAZINE (PROCHLORPERAZINE EDISYLATE) [Concomitant]
  3. HYDROCHLOROTHIAZIDE (HYDROCHLOROTHIAZIDE) [Concomitant]
  4. LISINOPRIL (LISINOPRIL) [Concomitant]
  5. ALBUTEROL (SALBUTAMOL) [Concomitant]
  6. TYLENOL (PARACETAMOL) [Concomitant]

REACTIONS (3)
  - Diarrhoea [None]
  - Drug intolerance [None]
  - Therapeutic response decreased [None]
